FAERS Safety Report 5097876-4 (Version None)
Quarter: 2006Q3

REPORT INFORMATION
  Report Type: 
  Country: None (occurrence: None)
  Receive Date: 20060905
  Receipt Date: 20060905
  Transmission Date: 20061208
  Serious: No
  Sender: FDA-Public Use
  Company Number: None

PATIENT
  Sex: Female
  Weight: 77.1115 kg

DRUGS (1)
  1. AVELOX [Suspect]
     Indication: LOBAR PNEUMONIA
     Dosage: ONE 1 X DAILY PO
     Route: 048
     Dates: start: 20060822, end: 20060831

REACTIONS (1)
  - NEUROPATHY [None]
